FAERS Safety Report 8707662 (Version 2)
Quarter: 2012Q4

REPORT INFORMATION
  Report Type: 
  Country: FR (occurrence: FR)
  Receive Date: 20120806
  Receipt Date: 20121001
  Transmission Date: 20130627
  Serious: Yes (Hospitalization, Other)
  Sender: FDA-Public Use
  Company Number: FR-PAR PHARMACEUTICAL, INC-2012SCPR004532

PATIENT

DRUGS (4)
  1. VERAPAMIL EXTENDED RELEASE [Suspect]
     Indication: PRODUCT USED FOR UNKNOWN INDICATION
     Dosage: UNK, Unknown
     Route: 065
  2. MODIODAL [Concomitant]
     Indication: HYPERSOMNIA
     Dosage: UNK, Unknown
     Route: 065
  3. COVERSYL [Concomitant]
     Indication: CARDIOMYOPATHY
     Dosage: UNK, Unknown
     Route: 065
  4. ISIMIG [Concomitant]
     Indication: MIGRAINE
     Dosage: UNK, Unknown
     Route: 065

REACTIONS (16)
  - Toxicity to various agents [Unknown]
  - Shock [Unknown]
  - Renal failure acute [Recovered/Resolved]
  - Sinoatrial block [Unknown]
  - Arrhythmia [Unknown]
  - Hypocalcaemia [Recovered/Resolved]
  - Hypokalaemia [Recovered/Resolved]
  - Neck pain [Unknown]
  - Overdose [Unknown]
  - Bradycardia [Unknown]
  - Hypotension [Unknown]
  - Headache [Unknown]
  - Syncope [None]
  - Hypoxia [None]
  - Vasoplegia syndrome [None]
  - Chest pain [None]
